FAERS Safety Report 20961578 (Version 1)
Quarter: 2022Q2

REPORT INFORMATION
  Report Type: Spontaneous
  Country: US (occurrence: US)
  Receive Date: 20220615
  Receipt Date: 20220615
  Transmission Date: 20220721
  Serious: No
  Sender: FDA-Public Use
  Company Number: US-BRISTOL-MYERS SQUIBB COMPANY-2022-058249

PATIENT
  Age: 81 Year
  Sex: Male
  Weight: 68.03 kg

DRUGS (1)
  1. REVLIMID [Suspect]
     Active Substance: LENALIDOMIDE
     Indication: Plasma cell myeloma
     Dosage: DOSAGE CYCLE: 21 DAYS ON/7 OFF
     Route: 048

REACTIONS (3)
  - Pain in jaw [Unknown]
  - Gingival pain [Unknown]
  - Toothache [Unknown]

NARRATIVE: CASE EVENT DATE: 20220315
